FAERS Safety Report 8246231-4 (Version None)
Quarter: 2012Q1

REPORT INFORMATION
  Report Type: 
  Country: None (occurrence: None)
  Receive Date: 20120330
  Receipt Date: 20100908
  Transmission Date: 20120608
  Serious: No
  Sender: FDA-Public Use
  Company Number: US-MYLANLABS-2010S1016611

PATIENT
  Age: 78 Year
  Sex: Female

DRUGS (1)
  1. ALBUTEROL SULATE [Suspect]
     Route: 055
     Dates: start: 20100813

REACTIONS (3)
  - APHAGIA [None]
  - MOUTH ULCERATION [None]
  - ORAL PAIN [None]
